FAERS Safety Report 21689294 (Version 1)
Quarter: 2022Q4

REPORT INFORMATION
  Report Type: Spontaneous
  Country: US (occurrence: None)
  Receive Date: 20221205
  Receipt Date: 20221205
  Transmission Date: 20230113
  Serious: No
  Sender: FDA-Public Use
  Company Number: None

PATIENT
  Sex: Male

DRUGS (1)
  1. CIMZIA [Suspect]
     Active Substance: CERTOLIZUMAB PEGOL
     Indication: Crohn^s disease
     Dosage: 200MG OTHER SUBCUTANEOUS
     Route: 058
     Dates: start: 202002

REACTIONS (3)
  - Arthralgia [None]
  - Therapy interrupted [None]
  - Pain [None]
